FAERS Safety Report 24717006 (Version 1)
Quarter: 2024Q4

REPORT INFORMATION
  Report Type: Spontaneous
  Country: US (occurrence: US)
  Receive Date: 20241210
  Receipt Date: 20241210
  Transmission Date: 20250115
  Serious: Yes (Hospitalization)
  Sender: NOVARTIS
  Company Number: US-002147023-NVSC2024US234442

PATIENT
  Sex: Male

DRUGS (2)
  1. TAFINLAR [Suspect]
     Active Substance: DABRAFENIB MESYLATE
     Indication: Brain neoplasm malignant
     Dosage: 50 MG, BID
     Route: 048
  2. MEKINIST [Suspect]
     Active Substance: TRAMETINIB DIMETHYL SULFOXIDE
     Indication: Brain neoplasm malignant
     Dosage: 14 ML, QD
     Route: 048
     Dates: start: 202406

REACTIONS (3)
  - Vomiting [Unknown]
  - Weight decreased [Unknown]
  - Visual impairment [Unknown]
